FAERS Safety Report 7226644-X (Version None)
Quarter: 2011Q1

REPORT INFORMATION
  Report Type: 
  Country: None (occurrence: None)
  Receive Date: 20110105
  Receipt Date: 20101221
  Transmission Date: 20110831
  Serious: Yes (Other)
  Sender: FDA-Public Use
  Company Number: ACO_21091_2010

PATIENT
  Age: 59 Year
  Sex: Male
  Weight: 86.2 kg

DRUGS (20)
  1. AMPYRA [Suspect]
     Indication: GAIT DISTURBANCE
     Dosage: 10MG, Q 12 HRS, ORAL
     Route: 048
     Dates: start: 20100922
  2. AZELASTINE (AZELASTINE HYDROCHLORIDE) [Concomitant]
  3. FEXOFENADINE HCL [Concomitant]
  4. PATANOL EYE DROPS (OLOPATADINE HYDROCHLORIDE) [Concomitant]
  5. REBIF [Concomitant]
  6. FLUTICASONE ORAL (FLUTICASONE PROPIONATE) [Concomitant]
  7. RESTASIS (CICLOSPORIN) [Concomitant]
  8. FISH LIVER OIL (FISH OIL, VITAMINS NOS) [Concomitant]
  9. DIOVAN [Concomitant]
  10. PROVIGIL [Concomitant]
  11. NYSTATIN CREAM (NYSTATIN) [Concomitant]
  12. TERBINAFINE (TERBINAFINE HYDROCHLORIDE) [Concomitant]
  13. VERAPAMIIL (VERAPAMIL HYDROCHLORIDE) [Concomitant]
  14. VITAMIN D [Concomitant]
  15. SINGULAIR [Concomitant]
  16. VISICARE (SOLIFENACIN SUCCINATE) [Concomitant]
  17. ASPIRIN [Concomitant]
  18. ASCORBIC ACID [Concomitant]
  19. NEXIUM [Concomitant]
  20. VENTOLIN [Concomitant]

REACTIONS (5)
  - FALL [None]
  - DIZZINESS [None]
  - DYSPNOEA [None]
  - EXCORIATION [None]
  - LOSS OF CONSCIOUSNESS [None]
